FAERS Safety Report 7352040-0 (Version None)
Quarter: 2011Q1

REPORT INFORMATION
  Report Type: 
  Country: None (occurrence: None)
  Receive Date: 20110304
  Receipt Date: 20110221
  Transmission Date: 20110831
  Serious: Yes (Congenital Anomaly)
  Sender: FDA-Public Use
  Company Number: 2011MA001685

PATIENT
  Sex: Female

DRUGS (5)
  1. HYDROXOCOBALAMIN HYDROCHLORIDE (HYDROXOCOBALAMIN HYDROCHLORIDE) [Suspect]
     Indication: DRUG EXPOSURE DURING PREGNANCY
     Dosage: 3 DF;QM;TRPL
     Route: 064
     Dates: start: 20100815, end: 20101223
  2. OMEPRAZOLE [Suspect]
     Indication: DRUG EXPOSURE DURING PREGNANCY
     Dosage: 20 MG:OD;TRPL
     Route: 064
     Dates: start: 20081016, end: 20101223
  3. ACETAMINOPHEN AND CODEINE PHOSPHATE [Suspect]
     Indication: DRUG EXPOSURE DURING PREGNANCY
     Dosage: 2 DF;PRN;TRPL
     Route: 064
     Dates: start: 20090106, end: 20101223
  4. PREGABALIN [Suspect]
     Indication: DRUG EXPOSURE DURING PREGNANCY
     Dosage: 2 DF;BID;TRPL
     Route: 064
     Dates: start: 20100815, end: 20101223
  5. FOLIC ACID [Suspect]
     Indication: DRUG EXPOSURE DURING PREGNANCY
     Dosage: 1 DF;QD;TRPL
     Route: 064
     Dates: start: 20090501, end: 20101223

REACTIONS (3)
  - MATERNAL DRUGS AFFECTING FOETUS [None]
  - FORCEPS DELIVERY [None]
  - HIP DYSPLASIA [None]
